FAERS Safety Report 5365431-4 (Version None)
Quarter: 2007Q2

REPORT INFORMATION
  Report Type: 
  Country: None (occurrence: None)
  Receive Date: 20070530
  Receipt Date: 20070223
  Transmission Date: 20071010
  Serious: No
  Sender: FDA-Public Use
  Company Number: 2006PV022966

PATIENT
  Age: 78 Year
  Sex: Female
  Weight: 80.7403 kg

DRUGS (8)
  1. BYETTA [Suspect]
     Indication: DIABETES MELLITUS NON-INSULIN-DEPENDENT
     Dosage: 10 MCG; BID; SC, 5 MCG; BID; SC, 5 MCG; BID; SC
     Route: 058
     Dates: start: 20060901, end: 20061001
  2. BYETTA [Suspect]
     Indication: DIABETES MELLITUS NON-INSULIN-DEPENDENT
     Dosage: 10 MCG; BID; SC, 5 MCG; BID; SC, 5 MCG; BID; SC
     Route: 058
     Dates: start: 20061006, end: 20061016
  3. BYETTA [Suspect]
     Indication: DIABETES MELLITUS NON-INSULIN-DEPENDENT
     Dosage: 10 MCG; BID; SC, 5 MCG; BID; SC, 5 MCG; BID; SC
     Route: 058
     Dates: start: 20061017
  4. BYETTA [Suspect]
  5. METFORMIN HCL [Suspect]
  6. GLIMEPIRIDE [Concomitant]
  7. AVANDIA [Concomitant]
  8. ... [Concomitant]

REACTIONS (5)
  - BLOOD GLUCOSE INCREASED [None]
  - DRUG EFFECT DECREASED [None]
  - DRUG INEFFECTIVE [None]
  - NAUSEA [None]
  - WEIGHT DECREASED [None]
